FAERS Safety Report 7952791-0 (Version None)
Quarter: 2011Q4

REPORT INFORMATION
  Report Type: 
  Country: None (occurrence: None)
  Receive Date: 20111201
  Receipt Date: 20111122
  Transmission Date: 20120403
  Serious: Yes (Other)
  Sender: FDA-Public Use
  Company Number: US-ABBOTT-11P-163-0877141-00

PATIENT
  Sex: Male
  Weight: 111.23 kg

DRUGS (7)
  1. TRAMADOL HCL [Concomitant]
     Indication: PAIN
  2. TRAMADOL HCL [Concomitant]
     Indication: ANKYLOSING SPONDYLITIS
  3. HUMIRA [Suspect]
     Indication: ANKYLOSING SPONDYLITIS
     Route: 058
     Dates: start: 20090101, end: 20100101
  4. HUMIRA [Suspect]
     Route: 058
     Dates: start: 20100101, end: 20110601
  5. UNKNOWN MEDICATIONS [Concomitant]
     Indication: HYPERTENSION
  6. UNKNOWN MEDICATIONS [Concomitant]
     Indication: BLOOD CHOLESTEROL INCREASED
  7. UNKNOWN MEDICATIONS [Concomitant]
     Indication: CARDIAC DISORDER

REACTIONS (7)
  - PAINFUL RESPIRATION [None]
  - ANKYLOSING SPONDYLITIS [None]
  - MUSCLE SPASMS [None]
  - BACK PAIN [None]
  - GAIT DISTURBANCE [None]
  - ARTHRALGIA [None]
  - MOVEMENT DISORDER [None]
